FAERS Safety Report 5125745-X (Version None)
Quarter: 2006Q3

REPORT INFORMATION
  Report Type: 
  Country: None (occurrence: None)
  Receive Date: 20060814
  Receipt Date: 20050822
  Transmission Date: 20061208
  Serious: Yes (Hospitalization)
  Sender: FDA-Public Use
  Company Number: K200501124

PATIENT
  Age: 43 Year
  Sex: Female
  Weight: 119.7 kg

DRUGS (1)
  1. DELESTROGEN [Suspect]
     Indication: HORMONE REPLACEMENT THERAPY
     Dosage: 20 MG, INTRAMUSCULAR
     Route: 030
     Dates: start: 20020101, end: 20050801

REACTIONS (5)
  - ANAPHYLACTIC REACTION [None]
  - CHEST DISCOMFORT [None]
  - OBSTRUCTIVE AIRWAYS DISORDER [None]
  - RASH [None]
  - THROAT TIGHTNESS [None]
